FAERS Safety Report 8234512-X (Version None)
Quarter: 2012Q1

REPORT INFORMATION
  Report Type: 
  Country: None (occurrence: None)
  Receive Date: 20120326
  Receipt Date: 20120315
  Transmission Date: 20120608
  Serious: Yes (Death)
  Sender: FDA-Public Use
  Company Number: DE-ROCHE-1043041

PATIENT
  Age: 75 Year
  Sex: Female
  Weight: 77 kg

DRUGS (1)
  1. XELODA [Suspect]
     Indication: COLON CANCER

REACTIONS (2)
  - NEOPLASM MALIGNANT [None]
  - PROCEDURAL COMPLICATION [None]
